FAERS Safety Report 5072694-1 (Version None)
Quarter: 2006Q3

REPORT INFORMATION
  Report Type: 
  Country: None (occurrence: None)
  Receive Date: 20060807
  Receipt Date: 20060727
  Transmission Date: 20061208
  Serious: Yes (Hospitalization)
  Sender: FDA-Public Use
  Company Number: DE-ROCHE-457369

PATIENT
  Age: 58 Year
  Sex: Female
  Weight: 94 kg

DRUGS (5)
  1. CAPECITABINE [Suspect]
     Dosage: 2 X 1250 MG/M2 DAILY, DAY 1-14, EVERY 3 WEEKS, AS PER PROTOCOL.
     Route: 048
     Dates: start: 20060619, end: 20060717
  2. CAPECITABINE [Suspect]
     Route: 048
  3. HERCEPTIN [Suspect]
     Dosage: LOADING DOSE.
     Route: 042
     Dates: start: 20060619, end: 20060619
  4. HERCEPTIN [Suspect]
     Dosage: MAINTENANCE DOSE OF 2 MG/KG ONCE PER WEEK, AS PER PROTOCOL.
     Route: 042
     Dates: start: 20060626, end: 20060710
  5. HERCEPTIN [Suspect]
     Route: 042

REACTIONS (1)
  - HAEMATEMESIS [None]
